FAERS Safety Report 12965107 (Version 1)
Quarter: 2016Q4

REPORT INFORMATION
  Report Type: Report from Study
  Country: DE (occurrence: DE)
  Receive Date: 20161122
  Receipt Date: 20161122
  Transmission Date: 20170207
  Serious: Yes (Hospitalization)
  Sender: FDA-Public Use
  Company Number: DE-SA-2016SA208635

PATIENT
  Age: 65 Year
  Sex: Male
  Weight: 115 kg

DRUGS (1)
  1. CABAZITAXEL [Suspect]
     Active Substance: CABAZITAXEL
     Indication: PROSTATE CANCER METASTATIC
     Route: 042
     Dates: start: 20150527, end: 20150812

REACTIONS (5)
  - Fatigue [Not Recovered/Not Resolved]
  - Haematuria [Not Recovered/Not Resolved]
  - Anaemia [Not Recovered/Not Resolved]
  - Transaminases increased [Not Recovered/Not Resolved]
  - Weight decreased [Not Recovered/Not Resolved]

NARRATIVE: CASE EVENT DATE: 20150623
